FAERS Safety Report 17125608 (Version 1)
Quarter: 2019Q4

REPORT INFORMATION
  Report Type: Report from Study
  Country: US (occurrence: US)
  Receive Date: 20191208
  Receipt Date: 20191208
  Transmission Date: 20200122
  Serious: Yes (Other)
  Sender: FDA-Public Use
  Company Number: NVSC2019US058307

PATIENT
  Sex: Female

DRUGS (1)
  1. AFINITOR [Suspect]
     Active Substance: EVEROLIMUS
     Indication: PRODUCT USED FOR UNKNOWN INDICATION
     Route: 065

REACTIONS (8)
  - Acute kidney injury [Unknown]
  - Vomiting [Recovered/Resolved]
  - Blood creatinine increased [Unknown]
  - Diarrhoea [Unknown]
  - Decreased appetite [Unknown]
  - Ageusia [Unknown]
  - Weight decreased [Unknown]
  - Nausea [Recovered/Resolved]
